FAERS Safety Report 16598619 (Version 2)
Quarter: 2019Q3

REPORT INFORMATION
  Report Type: Spontaneous
  Country: US (occurrence: US)
  Receive Date: 20190719
  Receipt Date: 20190722
  Transmission Date: 20191004
  Serious: No
  Sender: FDA-Public Use
  Company Number: US-BAYER-2019-132486

PATIENT
  Age: 66 Year
  Sex: Female

DRUGS (1)
  1. BETASERON [Suspect]
     Active Substance: INTERFERON BETA-1B
     Indication: MULTIPLE SCLEROSIS
     Dosage: 0.75 DF
     Route: 058
     Dates: start: 1993

REACTIONS (3)
  - Pyrexia [Recovered/Resolved]
  - Injection site inflammation [Recovered/Resolved]
  - Product use issue [None]

NARRATIVE: CASE EVENT DATE: 20190707
